FAERS Safety Report 9323592 (Version 3)
Quarter: 2013Q2

REPORT INFORMATION
  Report Type: Spontaneous
  Country: US (occurrence: US)
  Receive Date: 20130603
  Receipt Date: 20130621
  Transmission Date: 20140414
  Serious: No
  Sender: FDA-Public Use
  Company Number: US-PFIZER INC-2013164011

PATIENT
  Age: 85 Year
  Sex: Female
  Weight: 57 kg

DRUGS (1)
  1. LEVOXYL [Suspect]
     Indication: HYPOTHYROIDISM
     Dosage: 75 UG, 1X/DAY
     Dates: end: 201305

REACTIONS (2)
  - Drug ineffective [Unknown]
  - Blood thyroid stimulating hormone increased [Unknown]
